FAERS Safety Report 12517785 (Version 1)
Quarter: 2016Q2

REPORT INFORMATION
  Report Type: Spontaneous
  Country: BE (occurrence: BE)
  Receive Date: 20160630
  Receipt Date: 20160630
  Transmission Date: 20160815
  Serious: Yes (Hospitalization)
  Sender: FDA-Public Use
  Company Number: BE-FRESENIUS KABI-FK201603924

PATIENT
  Age: 88 Year
  Sex: Female

DRUGS (1)
  1. VALPROATE [Suspect]
     Active Substance: VALPROIC ACID
     Indication: EPILEPSY
     Route: 065

REACTIONS (4)
  - Pleurisy [Recovered/Resolved]
  - Encephalopathy [Unknown]
  - Toxicity to various agents [Unknown]
  - Pulmonary eosinophilia [Recovered/Resolved]
